FAERS Safety Report 8354218-6 (Version None)
Quarter: 2012Q2

REPORT INFORMATION
  Report Type: 
  Country: None (occurrence: None)
  Receive Date: 20120511
  Receipt Date: 20120508
  Transmission Date: 20120825
  Serious: Yes (Death)
  Sender: FDA-Public Use
  Company Number: CH-ROCHE-1067526

PATIENT
  Age: 81 Year
  Sex: Male

DRUGS (3)
  1. LUCENTIS [Suspect]
     Route: 050
     Dates: start: 20120208
  2. MARCUMAR [Concomitant]
  3. LUCENTIS [Suspect]
     Indication: AGE-RELATED MACULAR DEGENERATION
     Route: 050
     Dates: start: 20100623

REACTIONS (1)
  - CARDIAC DEATH [None]
